FAERS Safety Report 9249070 (Version 1)
Quarter: 2013Q2

REPORT INFORMATION
  Report Type: Spontaneous
  Country: CA (occurrence: CA)
  Receive Date: 20130423
  Receipt Date: 20130423
  Transmission Date: 20140414
  Serious: Yes (Other)
  Sender: FDA-Public Use
  Company Number: CA-BAYER-2013-026288

PATIENT
  Age: 52 Year
  Sex: Male
  Weight: 57 kg

DRUGS (6)
  1. GLUCOBAY [Suspect]
     Indication: DIABETES MELLITUS
     Dosage: 50 MG, BID
  2. ATORVASTATIN [Suspect]
     Indication: BLOOD CHOLESTEROL DECREASED
     Dosage: HALF TABLET DIE
  3. GLICLAZIDE [Concomitant]
  4. METFORMIN [Concomitant]
     Dosage: UNK UNK, TID
  5. MICARDIS [Concomitant]
     Dosage: HALF CO DIE
  6. ONGLYZA [Concomitant]
     Dosage: 5 UNK, UNK

REACTIONS (5)
  - Suicidal ideation [None]
  - Depression [None]
  - Constipation [Recovering/Resolving]
  - Diarrhoea [Recovering/Resolving]
  - Headache [Recovering/Resolving]
